FAERS Safety Report 22531351 (Version 1)
Quarter: 2023Q2

REPORT INFORMATION
  Report Type: Spontaneous
  Country: US (occurrence: None)
  Receive Date: 20230606
  Receipt Date: 20230606
  Transmission Date: 20230721
  Serious: Yes (Hospitalization)
  Sender: FDA-Public Use
  Company Number: None

PATIENT
  Age: 64 Year
  Sex: Male
  Weight: 80.5 kg

DRUGS (3)
  1. KEYTRUDA [Suspect]
     Active Substance: PEMBROLIZUMAB
     Indication: Oesophageal carcinoma
     Dosage: OTHER FREQUENCY : EVERY 6 WEEKS;?
     Route: 042
     Dates: start: 20220626, end: 20230503
  2. FLUOROURACIL\LEUCOVORIN CALCIUM\OXALIPLATIN [Concomitant]
     Active Substance: FLUOROURACIL\LEUCOVORIN CALCIUM\OXALIPLATIN
     Dates: start: 20220627, end: 20230503
  3. TRASTUZUMAB [Concomitant]
     Active Substance: TRASTUZUMAB
     Dates: start: 20220627, end: 20230503

REACTIONS (12)
  - Acute kidney injury [None]
  - Dialysis [None]
  - Encephalopathy [None]
  - Alcohol withdrawal syndrome [None]
  - Pleural effusion [None]
  - Lung opacity [None]
  - Toxicity to various agents [None]
  - Acute respiratory failure [None]
  - Parainfluenzae virus infection [None]
  - Pneumonia [None]
  - Acute lung injury [None]
  - Hypervolaemia [None]

NARRATIVE: CASE EVENT DATE: 20230525
